FAERS Safety Report 12648614 (Version 1)
Quarter: 2016Q3

REPORT INFORMATION
  Report Type: Spontaneous
  Country: PH (occurrence: PH)
  Receive Date: 20160812
  Receipt Date: 20160812
  Transmission Date: 20161109
  Serious: Yes (Hospitalization)
  Sender: FDA-Public Use
  Company Number: PHHY2016PH109566

PATIENT
  Age: 41 Year
  Sex: Female

DRUGS (2)
  1. VANCOMYCIN [Suspect]
     Active Substance: VANCOMYCIN
     Dosage: 1 G, Q8H (OVER 3-4 HOURS)
     Route: 042
  2. VANCOMYCIN [Suspect]
     Active Substance: VANCOMYCIN
     Dosage: 1.25 G, Q8H
     Route: 042
     Dates: start: 20160617

REACTIONS (3)
  - Pyrexia [Unknown]
  - Rash morbilliform [Unknown]
  - Rash [Unknown]

NARRATIVE: CASE EVENT DATE: 20160705
